FAERS Safety Report 4943538-0 (Version None)
Quarter: 2006Q1

REPORT INFORMATION
  Report Type: 
  Country: None (occurrence: None)
  Receive Date: 20060309
  Receipt Date: 20060228
  Transmission Date: 20060701
  Serious: Yes (Other)
  Sender: FDA-Public Use
  Company Number: 2006029373

PATIENT
  Age: 29 Year
  Sex: Male
  Weight: 81.6475 kg

DRUGS (2)
  1. BENADRYL [Suspect]
     Indication: NASOPHARYNGITIS
     Dosage: 1 KAPSEAL ONCE, ORAL
     Route: 048
     Dates: start: 20060227, end: 20060227
  2. SUDAFED COLD AND COUGH (PARACETAMOL, PSEUDOEPHEDRINE, DEXTROMETHORPHAN [Suspect]
     Indication: NASOPHARYNGITIS
     Dates: start: 20060227

REACTIONS (1)
  - FACIAL PALSY [None]
